FAERS Safety Report 7358918-6 (Version None)
Quarter: 2011Q1

REPORT INFORMATION
  Report Type: 
  Country: None (occurrence: None)
  Receive Date: 20110317
  Receipt Date: 20110307
  Transmission Date: 20110831
  Serious: Yes (Other)
  Sender: FDA-Public Use
  Company Number: ZA-BRISTOL-MYERS SQUIBB COMPANY-15597230

PATIENT
  Age: 21 Year
  Sex: Male

DRUGS (1)
  1. STOCRIN [Suspect]

REACTIONS (1)
  - DRUG ABUSE [None]
